FAERS Safety Report 6566199-6 (Version None)
Quarter: 2010Q1

REPORT INFORMATION
  Report Type: 
  Country: None (occurrence: None)
  Receive Date: 20100202
  Receipt Date: 20100121
  Transmission Date: 20100710
  Serious: Yes (Hospitalization)
  Sender: FDA-Public Use
  Company Number: NL-PFIZER INC-2010008832

PATIENT
  Sex: Male

DRUGS (2)
  1. SOMAVERT [Suspect]
     Indication: ACROMEGALY
     Dosage: 10 MG, UNK
     Route: 058
  2. SOMATOLINE [Suspect]
     Indication: ACROMEGALY
     Dosage: UNK

REACTIONS (1)
  - PSYCHOTIC DISORDER [None]
